FAERS Safety Report 9275089 (Version 1)
Quarter: 2013Q2

REPORT INFORMATION
  Report Type: Spontaneous
  Country: US (occurrence: US)
  Receive Date: 20130507
  Receipt Date: 20130507
  Transmission Date: 20140414
  Serious: Yes (Death)
  Sender: FDA-Public Use
  Company Number: PHEH2013US009877

PATIENT
  Age: 49 Year
  Sex: Male

DRUGS (8)
  1. ZOMETA [Suspect]
     Dosage: 4 MG, QMO
     Route: 042
     Dates: start: 20120327, end: 201205
  2. OXYCODONE [Concomitant]
     Dosage: UNK UKN, UNK
  3. LASIX [Concomitant]
     Dosage: UNK UKN, UNK
  4. VEPESID [Concomitant]
     Dosage: UNK UKN, UNK
  5. ZOFRAN [Concomitant]
     Dosage: UNK UKN, UNK
  6. POTASSIUM [Concomitant]
     Dosage: UNK UKN, UNK
  7. DECADRON [Concomitant]
     Dosage: UNK UKN, UNK
  8. AREDIA [Concomitant]
     Dosage: UNK UKN, UNK

REACTIONS (1)
  - Death [Fatal]
